APPROVED DRUG PRODUCT: MICAFUNGIN SODIUM
Active Ingredient: MICAFUNGIN SODIUM
Strength: EQ 50MG BASE/VIAL
Dosage Form/Route: INJECTABLE;INTRAVENOUS
Application: A207344 | Product #001 | TE Code: AP
Applicant: FRESENIUS KABI USA LLC
Approved: May 17, 2019 | RLD: No | RS: Yes | Type: RX